FAERS Safety Report 17902278 (Version 1)
Quarter: 2020Q2

REPORT INFORMATION
  Report Type: Spontaneous
  Country: US (occurrence: US)
  Receive Date: 20200616
  Receipt Date: 20200616
  Transmission Date: 20200714
  Serious: Yes (Other)
  Sender: FDA-Public Use
  Company Number: US-AMERICAN REGENT INC-2020001235

PATIENT
  Age: 88 Year
  Sex: Male

DRUGS (3)
  1. NICARDIPINE HYDROCHLORIDE INJECTION (0735-10) [Suspect]
     Active Substance: NICARDIPINE HYDROCHLORIDE
     Indication: BLOOD PRESSURE INCREASED
     Dosage: UNK, INITIATED THROUGH THE RIGHT ANTECUBITAL FOSSA
     Route: 042
  2. ALTEPLASE. [Suspect]
     Active Substance: ALTEPLASE
     Indication: ISCHAEMIC STROKE
     Dosage: UNK, ADMINISTERED THROUGH THE LEFT ANTECUBITAL FOSSA
     Route: 042
  3. LEVETIRACETAM INJECTION (0517-3605-01) [Suspect]
     Active Substance: LEVETIRACETAM
     Indication: SEIZURE PROPHYLAXIS
     Dosage: UNK, ADMINISTERED IN THE RIGHT IV LINE
     Route: 042

REACTIONS (4)
  - Injection site extravasation [Recovered/Resolved]
  - Skin laceration [Recovered/Resolved]
  - Haematoma [Recovered/Resolved]
  - Blister [Recovered/Resolved]
